FAERS Safety Report 12037543 (Version 5)
Quarter: 2016Q3

REPORT INFORMATION
  Report Type: Spontaneous
  Country: US (occurrence: US)
  Receive Date: 20160208
  Receipt Date: 20160719
  Transmission Date: 20161109
  Serious: Yes (Life-Threatening, Hospitalization)
  Sender: FDA-Public Use
  Company Number: PHEH2016US002714

PATIENT
  Age: 74 Year
  Sex: Female
  Weight: 51.86 kg

DRUGS (1)
  1. ARZERRA [Suspect]
     Active Substance: OFATUMUMAB
     Indication: CHRONIC LYMPHOCYTIC LEUKAEMIA
     Dosage: 2000 OT FOR EVERY 28 DAYS
     Route: 042
     Dates: start: 20150304, end: 20150910

REACTIONS (7)
  - Dysphagia [Unknown]
  - Dysarthria [Unknown]
  - Sinusitis [Unknown]
  - Obstructive airways disorder [Recovered/Resolved]
  - Dyspnoea [Unknown]
  - Oedema [Recovered/Resolved]
  - Laryngeal stenosis [Recovered/Resolved]

NARRATIVE: CASE EVENT DATE: 20151029
